FAERS Safety Report 15492983 (Version 2)
Quarter: 2018Q4

REPORT INFORMATION
  Report Type: Other
  Country: CA (occurrence: CA)
  Receive Date: 20181012
  Receipt Date: 20181206
  Transmission Date: 20190205
  Serious: Yes (Hospitalization)
  Sender: FDA-Public Use
  Company Number: CA-CIPHER-2018-CA-001461

PATIENT
  Age: 53 Year
  Sex: Female
  Weight: 130 kg

DRUGS (8)
  1. FUROSEMIDE. [Concomitant]
     Active Substance: FUROSEMIDE
  2. AVAPRO [Concomitant]
     Active Substance: IRBESARTAN
  3. NAPROXEN. [Concomitant]
     Active Substance: NAPROXEN
  4. METHOTREXATE. [Concomitant]
     Active Substance: METHOTREXATE
     Dosage: 10.0 MILLIGRAM 1 EVERY 1 WEEK
     Route: 065
  5. PLAQUENIL [Concomitant]
     Active Substance: HYDROXYCHLOROQUINE SULFATE
  6. LASIX [Concomitant]
     Active Substance: FUROSEMIDE
  7. ACTEMRA [Suspect]
     Active Substance: TOCILIZUMAB
     Indication: RHEUMATOID ARTHRITIS
     Dosage: 800.0 MILLIGRAM
     Route: 042
  8. CITALOPRAM HYDROBROMIDE. [Concomitant]
     Active Substance: CITALOPRAM HYDROBROMIDE

REACTIONS (54)
  - Diarrhoea infectious [None]
  - Pain in extremity [None]
  - Trigger finger [None]
  - Weight increased [None]
  - Asthma [None]
  - Bronchitis [None]
  - Chronic obstructive pulmonary disease [None]
  - Inflammation [None]
  - Musculoskeletal stiffness [None]
  - Tooth abscess [None]
  - Sleep apnoea syndrome [None]
  - Dizziness [None]
  - Drug ineffective [None]
  - Abdominal distension [None]
  - Hypertension [Recovered/Resolved]
  - Arthralgia [None]
  - Mobility decreased [Recovered/Resolved]
  - Nausea [None]
  - Rash [None]
  - Vertigo [None]
  - Asthenia [None]
  - Dyspnoea [None]
  - Diarrhoea [Recovered/Resolved]
  - Eye irritation [None]
  - Fatigue [None]
  - Hepatic enzyme increased [Recovered/Resolved]
  - Impaired healing [Recovered/Resolved]
  - Malaise [None]
  - Paronychia [None]
  - Arthritis [None]
  - Tendon injury [None]
  - Weight decreased [Unknown]
  - Eye pain [None]
  - Trigger finger [Recovered/Resolved]
  - Blood pressure systolic increased [None]
  - Conjunctivitis [None]
  - Fall [None]
  - Headache [None]
  - Pain [None]
  - Rheumatoid arthritis [None]
  - Tonsillitis [Recovered/Resolved]
  - Weight increased [Unknown]
  - Wound [None]
  - Feeling of body temperature change [None]
  - Infusion related reaction [None]
  - Nasopharyngitis [None]
  - Nodule [None]
  - Oedema [None]
  - Somnolence [None]
  - Diarrhoea [None]
  - Irritable bowel syndrome [None]
  - Pruritus [None]
  - Tendon rupture [None]
  - Cellulitis [None]
